FAERS Safety Report 24322291 (Version 1)
Quarter: 2024Q3

REPORT INFORMATION
  Report Type: Spontaneous
  Country: FR (occurrence: FR)
  Receive Date: 20240916
  Receipt Date: 20240916
  Transmission Date: 20241017
  Serious: Yes (Hospitalization)
  Sender: CHEPLAPHARM
  Company Number: None

PATIENT
  Age: 17 Year
  Sex: Female
  Weight: 40 kg

DRUGS (6)
  1. PREDNISOLONE SODIUM METASULFOBENZOATE [Suspect]
     Active Substance: PREDNISOLONE SODIUM METAZOATE
     Indication: Systemic lupus erythematosus
     Dosage: 1 MG/KG/D (40 MG)?DAILY DOSE: 40 MILLIGRAM
     Route: 048
     Dates: start: 20240808
  2. OLANZAPINE [Suspect]
     Active Substance: OLANZAPINE
     Dosage: DAILY DOSE: 10 MILLIGRAM
  3. BENLYSTA [Suspect]
     Active Substance: BELIMUMAB
     Indication: Systemic lupus erythematosus
     Dosage: 10 MG/KG ?DAILY DOSE: 400 MILLIGRAM
     Route: 042
     Dates: start: 20240813
  4. PLAQUENIL [Suspect]
     Active Substance: HYDROXYCHLOROQUINE SULFATE
     Indication: Systemic lupus erythematosus
     Dosage: 200 MG X2/D ?DAILY DOSE: 400 MILLIGRAM
     Route: 048
     Dates: start: 20240808
  5. RAMIPRIL [Concomitant]
     Active Substance: RAMIPRIL
     Dosage: SCORED TABLET?DAILY DOSE: 2.5 MILLIGRAM
  6. CYCLOPHOSPHAMIDE [Concomitant]
     Active Substance: CYCLOPHOSPHAMIDE
     Dosage: 700 MG/M?
     Dates: start: 20240813

REACTIONS (5)
  - Confusional state [Recovering/Resolving]
  - Anxiety [Recovering/Resolving]
  - Insomnia [Recovering/Resolving]
  - Delusion [Recovering/Resolving]
  - Disorientation [Unknown]

NARRATIVE: CASE EVENT DATE: 20240818
